FAERS Safety Report 5360542-1 (Version None)
Quarter: 2007Q2

REPORT INFORMATION
  Report Type: 
  Country: None (occurrence: None)
  Receive Date: 20070618
  Receipt Date: 20070607
  Transmission Date: 20071010
  Serious: Yes (Other)
  Sender: FDA-Public Use
  Company Number: US-JNJFOC-20070601002

PATIENT
  Age: 13 Year
  Sex: Female
  Weight: 55.34 kg

DRUGS (10)
  1. REMICADE [Suspect]
     Route: 042
  2. REMICADE [Suspect]
     Route: 042
  3. REMICADE [Suspect]
     Route: 042
  4. REMICADE [Suspect]
     Route: 042
  5. REMICADE [Suspect]
     Indication: SPONDYLOARTHROPATHY
     Route: 042
  6. METHOTREXATE [Concomitant]
  7. LEFLUNOMIDE [Concomitant]
  8. PREDNISONE TAB [Concomitant]
  9. ZANTAC [Concomitant]
  10. PIROXICAM [Concomitant]

REACTIONS (5)
  - ALANINE AMINOTRANSFERASE INCREASED [None]
  - ALOPECIA [None]
  - ASPARTATE AMINOTRANSFERASE INCREASED [None]
  - PLATELET COUNT INCREASED [None]
  - THROMBOCYTOPENIA [None]
